FAERS Safety Report 10387118 (Version 1)
Quarter: 2014Q3

REPORT INFORMATION
  Report Type: Spontaneous
  Country: US (occurrence: None)
  Receive Date: 20140814
  Receipt Date: 20140814
  Transmission Date: 20150326
  Serious: Yes (Other)
  Sender: FDA-Public Use
  Company Number: None

PATIENT
  Age: 56 Year

DRUGS (1)
  1. ENBREL [Suspect]
     Active Substance: ETANERCEPT

REACTIONS (4)
  - Intraocular pressure increased [None]
  - Visual acuity reduced [None]
  - Blindness unilateral [None]
  - Eye pain [None]

NARRATIVE: CASE EVENT DATE: 20140402
